FAERS Safety Report 15280356 (Version 1)
Quarter: 2018Q3

REPORT INFORMATION
  Report Type: Spontaneous
  Country: US (occurrence: US)
  Receive Date: 20180730
  Receipt Date: 20180730
  Transmission Date: 20181010
  Serious: Yes (Life-Threatening, Hospitalization)
  Sender: FDA-Public Use
  Company Number: None

PATIENT
  Age: 66 Year
  Sex: Male

DRUGS (1)
  1. IODIXANOL. [Suspect]
     Active Substance: IODIXANOL
     Indication: CHRONIC KIDNEY DISEASE
     Route: 042
     Dates: start: 20180531, end: 20180531

REACTIONS (2)
  - Angioedema [None]
  - Obstructive airways disorder [None]

NARRATIVE: CASE EVENT DATE: 20180531
